FAERS Safety Report 14618830 (Version 1)
Quarter: 2018Q1

REPORT INFORMATION
  Report Type: Spontaneous
  Country: US (occurrence: US)
  Receive Date: 20180309
  Receipt Date: 20180309
  Transmission Date: 20180509
  Serious: Yes (Hospitalization)
  Sender: FDA-Public Use
  Company Number: US-BIOGEN-2018BV000118

PATIENT
  Age: 20 Year
  Sex: Male

DRUGS (1)
  1. ALPROLIX [Suspect]
     Active Substance: EFTRENONACOG ALFA
     Indication: HAEMOPHILIA
     Dosage: FOR WISDOM TEETH REMOVAL ON 12/18/2017, INCLUDED A DOSE OF ALPROLIX? ABOUT?1 1/2 HOUR BEFORE THE SUR
     Route: 065

REACTIONS (3)
  - Wisdom teeth removal [Recovered/Resolved]
  - Wound haemorrhage [Recovered/Resolved]
  - Incision site haemorrhage [Recovered/Resolved]

NARRATIVE: CASE EVENT DATE: 20171218
